FAERS Safety Report 19004766 (Version 1)
Quarter: 2021Q1

REPORT INFORMATION
  Report Type: Report from Study
  Country: CN (occurrence: CN)
  Receive Date: 20210312
  Receipt Date: 20210312
  Transmission Date: 20210420
  Serious: Yes (Hospitalization)
  Sender: FDA-Public Use
  Company Number: CN-ASTRAZENECA-2020SE94654

PATIENT
  Age: 18152 Day
  Sex: Female

DRUGS (76)
  1. CISPLATIN. [Suspect]
     Active Substance: CISPLATIN
     Indication: CERVIX CARCINOMA
     Route: 042
     Dates: start: 20200630, end: 20200630
  2. CISPLATIN. [Suspect]
     Active Substance: CISPLATIN
     Indication: CERVIX CARCINOMA
     Route: 042
     Dates: start: 20200714, end: 20200714
  3. SODIUM POTASSIUM MAGNESIUM CALCIUM AND GLUCOSE INJECTION [Concomitant]
     Active Substance: CALCIUM GLUCONATE\DEXTROSE\MAGNESIUM CHLORIDE\POTASSIUM CHLORIDE\SODIUM ACETATE\SODIUM CHLORIDE\TRISODIUM CITRATE DIHYDRATE
     Indication: ELECTROLYTE SUBSTITUTION THERAPY
     Dosage: 500.0ML ONCE/SINGLE ADMINISTRATION
     Route: 042
     Dates: start: 20200630, end: 20200630
  4. POTASSIUM CHLORIDE INJECTION [Concomitant]
     Active Substance: POTASSIUM CHLORIDE
     Indication: SUPPLEMENTATION THERAPY
     Dosage: 1.5G ONCE/SINGLE ADMINISTRATION
     Route: 042
     Dates: start: 20200630, end: 20200630
  5. METRONIDAZOLE N E AND TOTAL GINSENOSID OF GINSENG STEMS AND LEAVES ... [Concomitant]
     Indication: CERVIX CARCINOMA
     Route: 067
     Dates: start: 20200731, end: 20200731
  6. PALONOSETRON HYDROCHLORIDE INJECTION [Concomitant]
     Active Substance: PALONOSETRON HYDROCHLORIDE
     Indication: VOMITING
     Dosage: 250.0UG ONCE/SINGLE ADMINISTRATION
     Route: 042
     Dates: start: 20200714, end: 20200714
  7. GLUCOSE AND SODIUM CHLORIDE INJECTION [Concomitant]
     Indication: ELECTROLYTE IMBALANCE
     Dosage: 500.0ML ONCE/SINGLE ADMINISTRATION
     Route: 042
     Dates: start: 20200724, end: 20200724
  8. SHENGXUEBAO MIXTURE [Concomitant]
     Indication: ANAEMIA
     Route: 048
     Dates: start: 20200727, end: 20200902
  9. COENZYME COMPLEX FOR INJECTION [Concomitant]
     Indication: PLATELET COUNT INCREASED
     Dosage: 200 OTHER UNITS DAILY
     Route: 042
     Dates: start: 20200731, end: 20200805
  10. CONCENTRATED SODIUM CHLORIDE INJECTION [Concomitant]
     Indication: SUPPLEMENTATION THERAPY
     Dosage: 3.0G ONCE/SINGLE ADMINISTRATION
     Route: 042
     Dates: start: 20200820, end: 20200820
  11. POVIDONE IODINE SOLUTION [Concomitant]
     Indication: BRACHYTHERAPY
     Dosage: 110.0ML ONCE/SINGLE ADMINISTRATION
     Route: 061
     Dates: start: 20200808, end: 20200808
  12. DURVALUMAB. [Suspect]
     Active Substance: DURVALUMAB
     Indication: CERVIX CARCINOMA
     Route: 042
     Dates: start: 20201224, end: 20201224
  13. BRACHYTHERAPY [Suspect]
     Active Substance: RADIATION THERAPY
     Indication: CERVIX CARCINOMA
     Route: 065
  14. POTASSIUM CHLORIDE INJECTION [Concomitant]
     Active Substance: POTASSIUM CHLORIDE
     Indication: SUPPLEMENTATION THERAPY
     Dosage: 1.5G ONCE/SINGLE ADMINISTRATION
     Route: 042
     Dates: start: 20200707, end: 20200707
  15. ONDANSETRON HYDROCHLORIDE. [Concomitant]
     Active Substance: ONDANSETRON HYDROCHLORIDE
     Indication: VOMITING
     Route: 048
     Dates: start: 20200630, end: 20200709
  16. RECOMBINANT HUMAN GRANULOCYTE COLONY?STIMULATING FACTOR INJECTION [Concomitant]
     Indication: NEUTROPHIL COUNT DECREASED
     Route: 058
     Dates: start: 20200718, end: 20200719
  17. RECOMBINANT HUMAN GRANULOCYTE COLONY?STIMULATING FACTOR INJECTION [Concomitant]
     Indication: WHITE BLOOD CELL COUNT DECREASED
     Route: 058
     Dates: start: 20200722, end: 20200723
  18. RECOMBINANT HUMAN GRANULOCYTE COLONY?STIMULATING FACTOR INJECTION [Concomitant]
     Indication: NEUTROPHIL COUNT DECREASED
     Route: 058
     Dates: start: 20200727, end: 20200728
  19. COENZYME COMPLEX FOR INJECTION [Concomitant]
     Indication: PLATELET COUNT INCREASED
     Dosage: 200 OTHER UNITS DAILY
     Route: 042
     Dates: start: 20200727, end: 20200727
  20. ORAL PROTEIN HYDROLYSATE [Concomitant]
     Indication: HYPOALBUMINAEMIA
     Route: 048
     Dates: start: 20200731, end: 20200731
  21. POVIDONE IODINE SOLUTION [Concomitant]
     Indication: BRACHYTHERAPY
     Dosage: 110.0ML ONCE/SINGLE ADMINISTRATION
     Route: 061
     Dates: start: 20200808, end: 20200808
  22. DURVALUMAB. [Suspect]
     Active Substance: DURVALUMAB
     Indication: CERVIX CARCINOMA
     Route: 042
     Dates: start: 20200806, end: 20200806
  23. CISPLATIN. [Suspect]
     Active Substance: CISPLATIN
     Indication: CERVIX CARCINOMA
     Route: 042
     Dates: start: 20200806, end: 20200806
  24. POTASSIUM CHLORIDE INJECTION [Concomitant]
     Active Substance: POTASSIUM CHLORIDE
     Indication: SUPPLEMENTATION THERAPY
     Dosage: 1.5G ONCE/SINGLE ADMINISTRATION
     Route: 042
     Dates: start: 20200714, end: 20200714
  25. METRONIDAZOLE N E AND TOTAL GINSENOSID OF GINSENG STEMS AND LEAVES ... [Concomitant]
     Indication: CERVIX CARCINOMA
     Route: 067
     Dates: start: 20200604, end: 20200715
  26. RECOMBINANT HUMAN GRANULOCYTE STIMULATING FACTOR INJECTION [Concomitant]
     Indication: WHITE BLOOD CELL COUNT DECREASED
     Route: 058
     Dates: start: 20200711, end: 20200712
  27. SHENGXUEBAO MIXTURE [Concomitant]
     Indication: ANAEMIA
     Route: 048
     Dates: start: 20200904, end: 20200907
  28. POTASSIUM CHLORIDE INJECTION [Concomitant]
     Active Substance: POTASSIUM CHLORIDE
     Indication: SUPPLEMENTATION THERAPY
     Dosage: 1.5G ONCE/SINGLE ADMINISTRATION
     Route: 042
     Dates: start: 20200820, end: 20200820
  29. PALONOSETRON HYDROCHLORIDE INJECTION [Concomitant]
     Active Substance: PALONOSETRON HYDROCHLORIDE
     Indication: VOMITING
     Dosage: 250.0UG ONCE/SINGLE ADMINISTRATION
     Route: 042
     Dates: start: 20200707, end: 20200707
  30. RECOMBINANT HUMAN GRANULOCYTE COLONY?STIMULATING FACTOR INJECTION [Concomitant]
     Indication: WHITE BLOOD CELL COUNT DECREASED
     Route: 058
     Dates: start: 20200718, end: 20200719
  31. RECOMBINANT HUMAN GRANULOCYTE COLONY?STIMULATING FACTOR INJECTION [Concomitant]
     Indication: NEUTROPHIL COUNT DECREASED
     Route: 058
     Dates: start: 20200722, end: 20200723
  32. RECOMBINANT HUMAN GRANULOCYTE COLONY?STIMULATING FACTOR INJECTION [Concomitant]
     Indication: NEUTROPHIL COUNT DECREASED
     Route: 058
     Dates: start: 20200730, end: 20200804
  33. SODIUM POTASSIUM MAGNESIUM CALCIUN AND GLUCOSE INJECTION [Concomitant]
     Indication: ELECTROLYTE IMBALANCE
     Dosage: 500.0ML ONCE/SINGLE ADMINISTRATION
     Route: 042
     Dates: start: 20200731, end: 20200731
  34. PIPERACILLIN SODIUM AND TAZOBACTAM SODIUM FOR INJECTION [Concomitant]
     Indication: INFECTION
     Route: 042
     Dates: start: 20200730, end: 20200805
  35. CISPLATIN. [Suspect]
     Active Substance: CISPLATIN
     Indication: CERVIX CARCINOMA
     Route: 042
     Dates: start: 20200707, end: 20200707
  36. SODIUM POTASSIUM MAGNESIUM CALCIUM AND GLUCOSE INJECTION [Concomitant]
     Active Substance: CALCIUM GLUCONATE\DEXTROSE\MAGNESIUM CHLORIDE\POTASSIUM CHLORIDE\SODIUM ACETATE\SODIUM CHLORIDE\TRISODIUM CITRATE DIHYDRATE
     Indication: ELECTROLYTE SUBSTITUTION THERAPY
     Dosage: 500.0ML ONCE/SINGLE ADMINISTRATION
     Route: 042
     Dates: start: 20200707, end: 20200707
  37. POTASSIUM CHLORIDE INJECTION [Concomitant]
     Active Substance: POTASSIUM CHLORIDE
     Indication: SUPPLEMENTATION THERAPY
     Dosage: 1.5G ONCE/SINGLE ADMINISTRATION
     Route: 042
     Dates: start: 20200724, end: 20200724
  38. PALONOSETRON HYDROCHLORIDE INJECTION [Concomitant]
     Active Substance: PALONOSETRON HYDROCHLORIDE
     Indication: NAUSEA
     Dosage: 250.0UG ONCE/SINGLE ADMINISTRATION
     Route: 042
     Dates: start: 20200707, end: 20200707
  39. SODIUM POTASSIUM MAGNESIUM CALCIUN AND GLUCOSE INJECTION [Concomitant]
     Indication: ELECTROLYTE IMBALANCE
     Dosage: 500.0ML ONCE/SINGLE ADMINISTRATION
     Route: 042
     Dates: start: 20200727, end: 20200727
  40. CLOSTRIDIUM BUTYRICUM CAPSULE,LIVE [Concomitant]
     Indication: DIARRHOEA
     Route: 048
     Dates: start: 20200807, end: 20200815
  41. POVIDONE IODINE SOLUTION [Concomitant]
     Indication: BRACHYTHERAPY
     Dosage: 110.0ML ONCE/SINGLE ADMINISTRATION
     Route: 061
     Dates: start: 20200819, end: 20200819
  42. CISPLATIN. [Suspect]
     Active Substance: CISPLATIN
     Indication: CERVIX CARCINOMA
     Route: 042
     Dates: start: 20200820, end: 20200820
  43. PALONOSETRON HYDROCHLORIDE INJECTION [Concomitant]
     Active Substance: PALONOSETRON HYDROCHLORIDE
     Indication: NAUSEA
     Dosage: 250.0UG ONCE/SINGLE ADMINISTRATION
     Route: 042
     Dates: start: 20200714, end: 20200714
  44. RECOMBINANT HUMAN GRANULOCYTE COLONY?STIMULATING FACTOR INJECTION [Concomitant]
     Indication: WHITE BLOOD CELL COUNT DECREASED
     Route: 058
     Dates: start: 20200727, end: 20200728
  45. RECOMBINANT HUMAN INTERLEUKIN?11 FOR INJECTION [Concomitant]
     Indication: PLATELET COUNT DECREASED
     Route: 058
     Dates: start: 20200724, end: 20200726
  46. SHENGXUEBAO MIXTURE [Concomitant]
     Indication: ANAEMIA
     Route: 048
     Dates: start: 20200904, end: 20200907
  47. CONCENTRATED SODIUM CHLORIDE INJECTION [Concomitant]
     Indication: SUPPLEMENTATION THERAPY
     Route: 042
     Dates: start: 20200731, end: 20200805
  48. TETRACAINE HYDROCHLORIDE JELLY [Concomitant]
     Indication: LOCAL ANAESTHESIA
     Dosage: 8.0G ONCE/SINGLE ADMINISTRATION
     Route: 061
     Dates: start: 20200819, end: 20200819
  49. POVIDONE IODINE SOLUTION [Concomitant]
     Indication: BRACHYTHERAPY
     Dosage: 110.0ML ONCE/SINGLE ADMINISTRATION
     Route: 061
     Dates: start: 20200819, end: 20200819
  50. IRON DEXTRAN DISPERSIBLE TABLETS [Concomitant]
     Indication: ANAEMIA
     Route: 048
     Dates: start: 20200904, end: 20200907
  51. DURVALUMAB. [Suspect]
     Active Substance: DURVALUMAB
     Indication: CERVIX CARCINOMA
     Route: 042
     Dates: start: 20200902, end: 20200902
  52. DURVALUMAB. [Suspect]
     Active Substance: DURVALUMAB
     Indication: CERVIX CARCINOMA
     Route: 042
     Dates: start: 20200928, end: 20200928
  53. EBRT [Suspect]
     Active Substance: RADIATION THERAPY
     Indication: CERVIX CARCINOMA
     Route: 065
  54. ONDANSETRON HYDROCHLORIDE. [Concomitant]
     Active Substance: ONDANSETRON HYDROCHLORIDE
     Indication: NAUSEA
     Route: 048
     Dates: start: 20200630, end: 20200709
  55. SODIUM POTASSIUM MAGNESIUM CALCIUN AND GLUCOSE INJECTION [Concomitant]
     Indication: ELECTROLYTE IMBALANCE
     Dosage: 500.0ML ONCE/SINGLE ADMINISTRATION
     Route: 042
     Dates: start: 20200724, end: 20200724
  56. CAFFEIC ACID TABLETS [Concomitant]
     Indication: PLATELET COUNT DECREASED
     Route: 048
     Dates: start: 20200725, end: 20200902
  57. SHENGXUEBAO MIXTURE [Concomitant]
     Indication: ANAEMIA
     Route: 048
     Dates: start: 20200727, end: 20200902
  58. VITAMIN C INJECTION [Concomitant]
     Active Substance: ASCORBIC ACID
     Indication: VITAMIN SUPPLEMENTATION
     Route: 042
     Dates: start: 20200727, end: 20200727
  59. PIPERACILLIN SODIUM AND TAZOBACTAM SODIUM FOR INJECTION [Concomitant]
     Indication: INFECTION
     Route: 042
     Dates: start: 20200904, end: 20200907
  60. LYSINE ACETYLSALICYLATE FOR INJECTION [Concomitant]
     Indication: HYPOTHERMIA
     Dosage: 0.9G ONCE/SINGLE ADMINISTRATION
     Route: 030
     Dates: start: 20200730, end: 20200730
  61. ONDANSETRON HYDROCHLORIDE TABLETS [Concomitant]
     Active Substance: ONDANSETRON HYDROCHLORIDE
     Indication: NAUSEA
     Route: 048
     Dates: start: 20200730, end: 20200808
  62. ORAL PROTEIN HYDROLYSATE [Concomitant]
     Indication: HYPOALBUMINAEMIA
     Route: 048
     Dates: start: 20200731, end: 20200731
  63. CONCENTRATED SODIUM CHLORIDE INJECTION [Concomitant]
     Indication: SUPPLEMENTATION THERAPY
     Dosage: 5.0G ONCE/SINGLE ADMINISTRATION
     Route: 042
     Dates: start: 20200807, end: 20200807
  64. CONCENTRATED SODIUM CHLORIDE INJECTION [Concomitant]
     Indication: SUPPLEMENTATION THERAPY
     Dosage: 3.0G ONCE/SINGLE ADMINISTRATION
     Route: 042
     Dates: start: 20200807, end: 20200807
  65. TETRACAINE HYDROCHLORIDE JELLY [Concomitant]
     Indication: LOCAL ANAESTHESIA
     Dosage: 8.0G ONCE/SINGLE ADMINISTRATION
     Route: 061
     Dates: start: 20200808, end: 20200808
  66. PROMETHAZINE HYDROCHLORIDE INJECTION [Concomitant]
     Indication: PROPHYLAXIS
     Dosage: 25.0MG ONCE/SINGLE ADMINISTRATION
     Route: 030
     Dates: start: 20200907, end: 20200907
  67. DURVALUMAB. [Suspect]
     Active Substance: DURVALUMAB
     Indication: CERVIX CARCINOMA
     Route: 042
     Dates: start: 20200630, end: 20200630
  68. DURVALUMAB. [Suspect]
     Active Substance: DURVALUMAB
     Indication: CERVIX CARCINOMA
     Route: 042
     Dates: start: 20201028, end: 20201028
  69. DURVALUMAB. [Suspect]
     Active Substance: DURVALUMAB
     Indication: CERVIX CARCINOMA
     Route: 042
     Dates: start: 20201124, end: 20201124
  70. SODIUM POTASSIUM MAGNESIUM CALCIUM AND GLUCOSE INJECTION [Concomitant]
     Active Substance: CALCIUM GLUCONATE\DEXTROSE\MAGNESIUM CHLORIDE\POTASSIUM CHLORIDE\SODIUM ACETATE\SODIUM CHLORIDE\TRISODIUM CITRATE DIHYDRATE
     Indication: ELECTROLYTE SUBSTITUTION THERAPY
     Dosage: 500.0ML ONCE/SINGLE ADMINISTRATION
     Route: 042
     Dates: start: 20200714, end: 20200714
  71. POTASSIUM CHLORIDE INJECTION [Concomitant]
     Active Substance: POTASSIUM CHLORIDE
     Indication: SUPPLEMENTATION THERAPY
     Dosage: 1.5G ONCE/SINGLE ADMINISTRATION
     Route: 042
     Dates: start: 20200731, end: 20200805
  72. POTASSIUM CHLORIDE INJECTION [Concomitant]
     Active Substance: POTASSIUM CHLORIDE
     Indication: SUPPLEMENTATION THERAPY
     Dosage: 1.5G ONCE/SINGLE ADMINISTRATION
     Route: 042
     Dates: start: 20200731, end: 20200805
  73. RECOMBINANT HUMAN GRANULOCYTE COLONY?STIMULATING FACTOR INJECTION [Concomitant]
     Indication: WHITE BLOOD CELL COUNT DECREASED
     Route: 058
     Dates: start: 20200730, end: 20200804
  74. ONDANSETRON HYDROCHLORIDE TABLETS [Concomitant]
     Active Substance: ONDANSETRON HYDROCHLORIDE
     Indication: NAUSEA
     Route: 048
     Dates: start: 20200820, end: 20200820
  75. TETRACAINE HYDROCHLORIDE JELLY [Concomitant]
     Indication: LOCAL ANAESTHESIA
     Dosage: 8.0G ONCE/SINGLE ADMINISTRATION
     Route: 061
     Dates: start: 20200808, end: 20200808
  76. TETRACAINE HYDROCHLORIDE JELLY [Concomitant]
     Indication: LOCAL ANAESTHESIA
     Dosage: 8.0G ONCE/SINGLE ADMINISTRATION
     Route: 061
     Dates: start: 20200819, end: 20200819

REACTIONS (2)
  - Myelosuppression [Recovered/Resolved]
  - Urinary tract infection [Recovered/Resolved]

NARRATIVE: CASE EVENT DATE: 20200727
